FAERS Safety Report 4851159-3 (Version None)
Quarter: 2005Q4

REPORT INFORMATION
  Report Type: 
  Country: None (occurrence: None)
  Receive Date: 20051212
  Receipt Date: 20051118
  Transmission Date: 20060501
  Serious: Yes (Hospitalization)
  Sender: FDA-Public Use
  Company Number: CH-BRISTOL-MYERS SQUIBB COMPANY-13186721

PATIENT
  Age: 27 Year
  Sex: Female

DRUGS (11)
  1. ETOPOPHOS [Suspect]
     Indication: HODGKIN'S DISEASE
     Route: 042
     Dates: start: 20050717, end: 20051007
  2. BLEOMYCIN SULFATE [Suspect]
     Indication: HODGKIN'S DISEASE
     Route: 042
     Dates: start: 20050720, end: 20051013
  3. DOXORUBICIN [Suspect]
     Indication: HODGKIN'S DISEASE
     Route: 042
     Dates: start: 20050717, end: 20051005
  4. ENDOXAN [Suspect]
     Indication: HODGKIN'S DISEASE
     Route: 042
     Dates: start: 20050717, end: 20051005
  5. VINCRISTINE SULFATE [Suspect]
     Indication: HODGKIN'S DISEASE
     Route: 042
     Dates: start: 20050720, end: 20051013
  6. PROCARBAZINE [Suspect]
     Indication: HODGKIN'S DISEASE
     Route: 042
     Dates: start: 20050713, end: 20051005
  7. BLINDED: EPOETIN ALFA [Suspect]
     Dates: start: 20051013, end: 20051013
  8. BLINDED: PLACEBO [Suspect]
     Dates: start: 20051013, end: 20051013
  9. CIPROFLOXACIN [Concomitant]
     Route: 048
     Dates: start: 20050914, end: 20051013
  10. NEUPOGEN [Concomitant]
     Route: 058
     Dates: start: 20051012, end: 20051016
  11. AUGMENTIN [Concomitant]
     Route: 048
     Dates: start: 20050909, end: 20051003

REACTIONS (3)
  - DYSPNOEA [None]
  - PNEUMOCYSTIS JIROVECI PNEUMONIA [None]
  - PYREXIA [None]
